FAERS Safety Report 9408133 (Version 2)
Quarter: 2013Q3

REPORT INFORMATION
  Report Type: Report from Study
  Country: US (occurrence: US)
  Receive Date: 20130718
  Receipt Date: 20130731
  Transmission Date: 20140515
  Serious: Yes (Hospitalization)
  Sender: FDA-Public Use
  Company Number: US-ALEXION-A201301620

PATIENT
  Age: 24 Year
  Sex: Female
  Weight: 106.58 kg

DRUGS (21)
  1. ECULIZUMAB [Suspect]
     Indication: HAEMOLYTIC URAEMIC SYNDROME
     Dosage: 900 MG, QW
     Route: 042
     Dates: start: 20090827
  2. ECULIZUMAB [Suspect]
     Dosage: 1200 MG, Q2W
     Route: 042
  3. TYLENOL [Concomitant]
     Indication: PYREXIA
     Dosage: 500 MG, Q4H PRN
     Route: 048
  4. NORVASC [Concomitant]
     Indication: HYPERTENSION
     Dosage: 5 MG, QD
     Route: 048
  5. IMURAN [Concomitant]
     Indication: RENAL TRANSPLANT
     Dosage: 50 MG, QD
     Route: 048
  6. COREG [Concomitant]
     Indication: HYPERTENSION
     Dosage: 25 MG Q12H
     Route: 048
  7. CINACALCET [Concomitant]
     Dosage: 60 MG, QD
     Route: 048
  8. CLONIDINE [Concomitant]
     Indication: HYPERTENSION
     Dosage: 0.3 MG, TID
     Route: 048
  9. DILTIAZEM [Concomitant]
     Indication: HYPERTENSION
     Dosage: 360 MG, QD
     Route: 048
  10. ATIVAN [Concomitant]
     Dosage: 0.5 MG, TID
     Route: 048
  11. SOLUMEDROL [Concomitant]
     Dosage: 10 MG, QD
     Route: 042
  12. MINOXIDIL BAILLEUL [Concomitant]
     Indication: HYPERTENSION
     Dosage: 2.5 MG, BID
     Route: 048
  13. CELLCEPT [Concomitant]
     Indication: RENAL TRANSPLANT
     Dosage: 250 MG Q12H
     Route: 042
  14. PROTONIX [Concomitant]
     Indication: GASTROOESOPHAGEAL REFLUX DISEASE
     Dosage: 40 MG, QD
     Route: 048
  15. MIRALAX [Concomitant]
     Indication: CONSTIPATION
     Dosage: 17 G, QD
     Route: 048
  16. SODIUM BICARBONATE [Concomitant]
     Dosage: 1300 MG, TID
     Route: 048
  17. PROGRAF [Concomitant]
     Indication: RENAL TRANSPLANT
     Dosage: 3 MG Q12H
     Route: 060
  18. ULTRAM [Concomitant]
     Indication: PAIN
     Dosage: 50 MG Q6H PRN
     Route: 048
  19. VALCYTE [Concomitant]
     Indication: PROPHYLAXIS
     Dosage: 450 MG, QD
     Route: 048
  20. DIOVAN [Concomitant]
     Indication: HYPERTENSION
     Dosage: 160 MG, BID
     Route: 048
  21. AMBIEN [Concomitant]
     Indication: INSOMNIA
     Dosage: 10 MG, AT BEDTIME PRN
     Route: 048

REACTIONS (1)
  - Gastroenteritis [Recovered/Resolved]
